FAERS Safety Report 25305923 (Version 1)
Quarter: 2025Q2

REPORT INFORMATION
  Report Type: Spontaneous
  Country: US (occurrence: US)
  Receive Date: 20250513
  Receipt Date: 20250513
  Transmission Date: 20250717
  Serious: No
  Sender: UCB
  Company Number: US-UCBSA-2024019323

PATIENT
  Age: 63 Year
  Sex: Female

DRUGS (10)
  1. CIMZIA [Suspect]
     Active Substance: CERTOLIZUMAB PEGOL
     Indication: Crohn^s disease
     Dosage: 200 MILLIGRAM, EV 2 WEEKS(QOW)
     Route: 058
     Dates: start: 20170901
  2. HYALURONIC ACID [Concomitant]
     Active Substance: HYALURONIC ACID
     Indication: Product used for unknown indication
     Dates: start: 20240410
  3. KRILL OIL TRIPLE STRENGTH [Concomitant]
     Indication: Product used for unknown indication
  4. GARLIC NATURAL [Concomitant]
     Indication: Product used for unknown indication
  5. LUNESTA [Concomitant]
     Active Substance: ESZOPICLONE
     Indication: Product used for unknown indication
  6. PRENATAL 19 [Concomitant]
     Active Substance: .ALPHA.-TOCOPHEROL ACETATE, DL-\.BETA.-CAROTENE\ASCORBIC ACID\CALCIUM CARBONATE\CALCIUM PANTOTHENATE
     Indication: Product used for unknown indication
  7. KETOCONAZOLE [Concomitant]
     Active Substance: KETOCONAZOLE
     Indication: Product used for unknown indication
  8. ASPIRIN [Concomitant]
     Active Substance: ASPIRIN
     Indication: Product used for unknown indication
  9. CYANOCOBALAMIN [Concomitant]
     Active Substance: CYANOCOBALAMIN
     Indication: Product used for unknown indication
  10. CITRUCEL [Concomitant]
     Active Substance: METHYLCELLULOSE (4000 CPS)
     Indication: Product used for unknown indication

REACTIONS (1)
  - Dizziness [Unknown]

NARRATIVE: CASE EVENT DATE: 20240410
